FAERS Safety Report 24849139 (Version 1)
Quarter: 2025Q1

REPORT INFORMATION
  Report Type: Spontaneous
  Country: BE (occurrence: BE)
  Receive Date: 20250116
  Receipt Date: 20250116
  Transmission Date: 20250408
  Serious: Yes (Death, Life-Threatening, Other)
  Sender: PFIZER
  Company Number: BE-PFIZER INC-PV202500004922

PATIENT
  Age: 28 Year
  Sex: Male

DRUGS (1)
  1. KETAMINE HYDROCHLORIDE [Suspect]
     Active Substance: KETAMINE HYDROCHLORIDE
     Dosage: 4 G, DAILY

REACTIONS (3)
  - Drug abuse [Fatal]
  - Urinary tract disorder [Fatal]
  - Toxicity to various agents [Fatal]
